FAERS Safety Report 22913432 (Version 3)
Quarter: 2023Q4

REPORT INFORMATION
  Report Type: Spontaneous
  Country: JP (occurrence: JP)
  Receive Date: 20230906
  Receipt Date: 20231226
  Transmission Date: 20240109
  Serious: Yes (Other)
  Sender: FDA-Public Use
  Company Number: JP-ORGANON-O2308JPN000305J

PATIENT
  Age: 50 Year
  Sex: Male

DRUGS (4)
  1. ZETIA [Suspect]
     Active Substance: EZETIMIBE
     Indication: Hypercholesterolaemia
     Dosage: 10 MG FOR CONSECUTIVE DAYS
     Route: 048
     Dates: start: 20200210, end: 202107
  2. ZETIA [Suspect]
     Active Substance: EZETIMIBE
     Dosage: 10 MILLIGRAM, QOD
     Route: 048
     Dates: start: 20210705, end: 20220404
  3. LIVALO [Suspect]
     Active Substance: PITAVASTATIN CALCIUM
     Indication: Hypercholesterolaemia
     Dosage: 1 MILLIGRAM, QOD,ONCE/DAY
     Route: 048
     Dates: start: 20190225, end: 20191208
  4. LIVALO [Suspect]
     Active Substance: PITAVASTATIN CALCIUM
     Dosage: 1 MG FOR CONSECUTIVE DAYS
     Route: 048
     Dates: start: 20191209, end: 20200210

REACTIONS (10)
  - Facial paralysis [Recovered/Resolved]
  - Tendon rupture [Unknown]
  - Bone pain [Unknown]
  - Epicondylitis [Unknown]
  - Periarthritis [Unknown]
  - Feeling abnormal [Unknown]
  - Spinal osteoarthritis [Unknown]
  - Arthralgia [Unknown]
  - Myalgia [Unknown]
  - Product use issue [Unknown]

NARRATIVE: CASE EVENT DATE: 20210701
